FAERS Safety Report 11225014 (Version 3)
Quarter: 2015Q3

REPORT INFORMATION
  Report Type: Spontaneous
  Country: US (occurrence: US)
  Receive Date: 20150629
  Receipt Date: 20150928
  Transmission Date: 20151125
  Serious: Yes (Other)
  Sender: FDA-Public Use
  Company Number: US-PFIZER INC-2015209664

PATIENT
  Age: 89 Year
  Sex: Female
  Weight: 91 kg

DRUGS (1)
  1. REVATIO [Suspect]
     Active Substance: SILDENAFIL CITRATE
     Indication: LUNG DISORDER
     Dosage: 20 MG, 3X/DAY
     Route: 048
     Dates: start: 2011

REACTIONS (2)
  - Musculoskeletal pain [Recovered/Resolved]
  - Body height decreased [Recovered/Resolved]
